FAERS Safety Report 4994364-8 (Version None)
Quarter: 2006Q2

REPORT INFORMATION
  Report Type: 
  Country: None (occurrence: None)
  Receive Date: 20060505
  Receipt Date: 20060502
  Transmission Date: 20061013
  Serious: Yes (Hospitalization)
  Sender: FDA-Public Use
  Company Number: AT-BOEHRINGER INGELHEIM PHARMACEUTICALS, INC.-2006-BE-00045BE

PATIENT
  Sex: Female
  Weight: 122 kg

DRUGS (3)
  1. SIFROL -  0,35 MG - TABLETTEN [Suspect]
     Indication: PARKINSON'S DISEASE
     Dosage: 3 X 1,05 MG
     Route: 048
     Dates: start: 20010101, end: 20060401
  2. TRITTICO [Concomitant]
     Indication: DEPRESSION
     Dosage: 2/3
     Route: 048
  3. XANOR [Concomitant]
     Route: 048

REACTIONS (2)
  - FOOD CRAVING [None]
  - GAMBLING [None]
